FAERS Safety Report 9999164 (Version 1)
Quarter: 2014Q1

REPORT INFORMATION
  Report Type: Spontaneous
  Country: FR (occurrence: FR)
  Receive Date: 20140312
  Receipt Date: 20140312
  Transmission Date: 20141002
  Serious: Yes (Other)
  Sender: FDA-Public Use
  Company Number: FR-ACCORD-022405

PATIENT
  Age: 56 Year
  Sex: Female

DRUGS (6)
  1. METHYLPREDNISOLONE [Suspect]
     Indication: PREMEDICATION
     Route: 042
     Dates: start: 20131204, end: 20131205
  2. DESLORATADINE [Suspect]
     Indication: PREMEDICATION
     Route: 048
     Dates: start: 20131204, end: 20131205
  3. CARBOPLATIN [Suspect]
     Indication: OVARIAN CANCER STAGE III
     Route: 042
     Dates: start: 20131205, end: 20131205
  4. NEBIVOLOL [Concomitant]
     Indication: PRODUCT USED FOR UNKNOWN INDICATION
  5. DOCETAXEL [Suspect]
     Indication: OVARIAN CANCER STAGE III
     Route: 042
     Dates: start: 20131205, end: 20131205
  6. LEVOTHYROXINE [Concomitant]

REACTIONS (3)
  - Off label use [Unknown]
  - Erythema [Recovered/Resolved]
  - Sense of oppression [Recovered/Resolved]
